FAERS Safety Report 16423764 (Version 1)
Quarter: 2019Q2

REPORT INFORMATION
  Report Type: Spontaneous
  Country: None (occurrence: US)
  Receive Date: 20190613
  Receipt Date: 20190613
  Transmission Date: 20190711
  Serious: Yes (Other)
  Sender: FDA-Public Use
  Company Number: US-JIANGSU HENGRUI MEDICINE CO., LTD.-2068180

PATIENT
  Age: 55 Year
  Sex: Male

DRUGS (9)
  1. RITUXIMAB. [Concomitant]
     Active Substance: RITUXIMAB
  2. METHOTREXATE. [Concomitant]
     Active Substance: METHOTREXATE
  3. DOXORUBICIN [Concomitant]
     Active Substance: DOXORUBICIN
  4. KYMRIAH [Concomitant]
     Active Substance: TISAGENLECLEUCEL
  5. TEMOZOLAMIDE [Concomitant]
     Active Substance: TEMOZOLOMIDE
  6. CYCLOPHOSPHAMIDE FOR INJECTION USP, 500 MG, 1 G AND 2 G PER SINGLE-DOS [Suspect]
     Active Substance: CYCLOPHOSPHAMIDE
     Indication: DIFFUSE LARGE B-CELL LYMPHOMA
  7. PREDNISONE. [Concomitant]
     Active Substance: PREDNISONE
  8. VINCRISTINE [Concomitant]
     Active Substance: VINCRISTINE
  9. PROCARBAZINE [Concomitant]
     Active Substance: PROCARBAZINE

REACTIONS (4)
  - Seizure [Unknown]
  - Loss of consciousness [Unknown]
  - Diffuse large B-cell lymphoma recurrent [Unknown]
  - Generalised tonic-clonic seizure [Unknown]
